FAERS Safety Report 21707967 (Version 1)
Quarter: 2022Q4

REPORT INFORMATION
  Report Type: Spontaneous
  Country: DE (occurrence: DE)
  Receive Date: 20221209
  Receipt Date: 20221209
  Transmission Date: 20230113
  Serious: Yes (Hospitalization)
  Sender: FDA-Public Use
  Company Number: DE-ADRED-04423-01

PATIENT
  Age: 76 Year
  Sex: Male
  Weight: 53 kg

DRUGS (8)
  1. CISPLATIN [Suspect]
     Active Substance: CISPLATIN
     Indication: Product used for unknown indication
     Dosage: 96 MG, NK [PRESUMABLY: NOT CLASSIFIABLE
     Route: 065
     Dates: end: 20221208
  2. ETOPOSIDE [Suspect]
     Active Substance: ETOPOSIDE
     Indication: Product used for unknown indication
     Dosage: 192 MG, NK [PRESUMABLY: NOT CLASSIFIABLE
     Route: 065
  3. ASPIRIN [Concomitant]
     Active Substance: ASPIRIN
     Dosage: 100 MILLIGRAM, QD
     Route: 065
  4. GLYCOPYRRONIUM\INDACATEROL [Concomitant]
     Active Substance: GLYCOPYRRONIUM\INDACATEROL
     Dosage: NK [PRESUMABLY: NOT CLASSIFIABLE MG, 1-0-0-0
     Route: 065
  5. RAMIPRIL [Concomitant]
     Active Substance: RAMIPRIL
     Dosage: 2.5 MILLIGRAM, BID
     Route: 065
  6. INSULIN GLARGINE [Concomitant]
     Active Substance: INSULIN GLARGINE
     Dosage: 2 INTERNATIONAL UNIT, QD
     Route: 065
  7. SIMVASTATIN [Concomitant]
     Active Substance: SIMVASTATIN
     Dosage: 30 MG, 0-0-1-0
     Route: 065
  8. FIASP [Concomitant]
     Active Substance: INSULIN ASPART
     Dosage: NOT CLASSIFIABLE, ACCORDING TO SCHEME
     Route: 065

REACTIONS (6)
  - Productive cough [Unknown]
  - Cough [Unknown]
  - C-reactive protein increased [Unknown]
  - Oropharyngeal pain [Unknown]
  - Leukopenia [Unknown]
  - Infection [Unknown]
